FAERS Safety Report 11948490 (Version 2)
Quarter: 2016Q1

REPORT INFORMATION
  Report Type: Spontaneous
  Country: US (occurrence: US)
  Receive Date: 20160125
  Receipt Date: 20160202
  Transmission Date: 20160526
  Serious: Yes (Death, Other)
  Sender: FDA-Public Use
  Company Number: PHEH2016US001897

PATIENT
  Age: 80 Year
  Sex: Female

DRUGS (3)
  1. ZOMETA [Suspect]
     Active Substance: ZOLEDRONIC ACID
     Indication: BREAST CANCER
     Dosage: 4 MG, QMO (ONCE PER MONTH)
     Route: 042
     Dates: start: 2008
  2. XANAX [Concomitant]
     Active Substance: ALPRAZOLAM
     Indication: PRODUCT USED FOR UNKNOWN INDICATION
     Dosage: UNK
     Route: 065
  3. ZOMETA [Suspect]
     Active Substance: ZOLEDRONIC ACID
     Indication: METASTASES TO BONE

REACTIONS (15)
  - Osteonecrosis of jaw [Unknown]
  - Toothache [Unknown]
  - Gingival pain [Unknown]
  - Suicidal ideation [Unknown]
  - Sensitivity of teeth [Unknown]
  - Death [Fatal]
  - Noninfective gingivitis [Unknown]
  - Breath odour [Unknown]
  - Pain in jaw [Unknown]
  - Feeding disorder [Unknown]
  - Asthenia [Unknown]
  - Weight decreased [Unknown]
  - Pain [Unknown]
  - Oral pain [Unknown]
  - Mastication disorder [Unknown]

NARRATIVE: CASE EVENT DATE: 200902
